FAERS Safety Report 6380117-5 (Version None)
Quarter: 2009Q3

REPORT INFORMATION
  Report Type: 
  Country: None (occurrence: None)
  Receive Date: 20090929
  Receipt Date: 20090915
  Transmission Date: 20100115
  Serious: Yes (Other)
  Sender: FDA-Public Use
  Company Number: SN-RANBAXY-2009RR-28139

PATIENT
  Age: 18 Year
  Sex: Male

DRUGS (4)
  1. CIPROFLOXACIN HYDROCHLORIDE [Suspect]
     Dosage: 1 G, UNK
  2. QUININE [Suspect]
     Dosage: 1.5 G, UNK
  3. QUININE [Suspect]
     Dosage: 2.5 MG/KG/DAY
  4. ARTESUNATE/AMODIAQUINE [Concomitant]

REACTIONS (1)
  - DEAFNESS PERMANENT [None]
